FAERS Safety Report 9752934 (Version 1)
Quarter: 2013Q4

REPORT INFORMATION
  Report Type: Spontaneous
  Country: US (occurrence: None)
  Receive Date: 20131212
  Receipt Date: 20131212
  Transmission Date: 20140711
  Serious: Yes (Disabling)
  Sender: FDA-Public Use
  Company Number: None

PATIENT
  Age: 59 Year
  Sex: 0
  Weight: 97.7 kg

DRUGS (2)
  1. LEVAQUIN [Suspect]
     Indication: URINARY TRACT INFECTION
     Dates: start: 20090828
  2. CIPRO [Suspect]
     Indication: SINUSITIS
     Dates: start: 20120228

REACTIONS (6)
  - Pain in extremity [None]
  - Pain in extremity [None]
  - Tendon pain [None]
  - Nerve injury [None]
  - Toxicity to various agents [None]
  - Impaired work ability [None]
